FAERS Safety Report 8885819 (Version 1)
Quarter: 2012Q4

REPORT INFORMATION
  Report Type: 
  Country: US (occurrence: US)
  Receive Date: 20121101
  Receipt Date: 20121101
  Transmission Date: 20130627
  Serious: Yes (Death)
  Sender: FDA-Public Use
  Company Number: US-ROXANE LABORATORIES, INC.-2012-RO-02268RO

PATIENT
  Age: 69 Year

DRUGS (3)
  1. QUETIAPINE FUMARATE [Suspect]
     Route: 048
  2. VERAPAMIL [Suspect]
     Route: 048
  3. NORTRIPTYLINE [Suspect]
     Route: 048

REACTIONS (1)
  - Completed suicide [Fatal]
